FAERS Safety Report 8374336 (Version 5)
Quarter: 2012Q4

REPORT INFORMATION
  Report Type: 
  Country: TR (occurrence: TR)
  Receive Date: 20120131
  Receipt Date: 20120924
  Transmission Date: 20130627
  Serious: Yes (Death, Hospitalization, Other)
  Sender: FDA-Public Use
  Company Number: PHHY2012TR007216

PATIENT
  Age: 7 Year
  Sex: Male
  Weight: 18 kg

DRUGS (3)
  1. EXJADE [Suspect]
     Indication: APLASTIC ANAEMIA
     Dosage: 500 mg, daily
     Route: 048
  2. LANSOR [Concomitant]
     Dosage: 30 mg, UNK
  3. KEPPRA [Concomitant]
     Dosage: 500 mg, UNK

REACTIONS (5)
  - Cerebral haemorrhage [Fatal]
  - Dyspnoea [Recovering/Resolving]
  - Spinal cord compression [Recovering/Resolving]
  - Haemorrhage intracranial [Recovering/Resolving]
  - Dysphagia [Recovering/Resolving]
